FAERS Safety Report 7539933-6 (Version None)
Quarter: 2011Q2

REPORT INFORMATION
  Report Type: 
  Country: None (occurrence: None)
  Receive Date: 20110610
  Receipt Date: 20110601
  Transmission Date: 20111010
  Serious: Yes (Hospitalization)
  Sender: FDA-Public Use
  Company Number: JP-ASTRAZENECA-2011SE34782

PATIENT
  Sex: Female

DRUGS (4)
  1. NORVASC [Concomitant]
     Route: 065
  2. CANDESARTAN CILEXETIL AND HYDROCHLOROTHIAZIDE [Suspect]
     Indication: HYPERTENSION
     Dosage: 16 MG / 12.5 MG
     Route: 048
     Dates: start: 20080101, end: 20100730
  3. ASPIRIN [Concomitant]
     Route: 065
  4. MAALOX [Concomitant]
     Route: 065

REACTIONS (4)
  - CONFUSIONAL STATE [None]
  - HEADACHE [None]
  - VERTIGO [None]
  - HYPONATRAEMIA [None]
